FAERS Safety Report 20730489 (Version 1)
Quarter: 2022Q2

REPORT INFORMATION
  Report Type: Spontaneous
  Country: US (occurrence: None)
  Receive Date: 20220420
  Receipt Date: 20220420
  Transmission Date: 20220721
  Serious: Yes (Hospitalization)
  Sender: FDA-Public Use
  Company Number: None

PATIENT
  Sex: Female
  Weight: 77 kg

DRUGS (2)
  1. CYTARABINE [Suspect]
     Active Substance: CYTARABINE
     Dates: end: 20200311
  2. DAUNORUBICIN [Suspect]
     Active Substance: DAUNORUBICIN
     Dates: end: 20200307

REACTIONS (4)
  - Febrile neutropenia [None]
  - Alpha haemolytic streptococcal infection [None]
  - Atrial fibrillation [None]
  - Hypotension [None]

NARRATIVE: CASE EVENT DATE: 20200316
